FAERS Safety Report 7757543-2 (Version None)
Quarter: 2011Q3

REPORT INFORMATION
  Report Type: 
  Country: None (occurrence: None)
  Receive Date: 20110916
  Receipt Date: 20110820
  Transmission Date: 20111222
  Serious: No
  Sender: FDA-Public Use
  Company Number: US-B.I. PHARMACEUTICALS,INC./RIDGEFIELD-2011-BP-20448BP

PATIENT
  Age: 65 Year
  Sex: Female

DRUGS (4)
  1. LOTREL [Concomitant]
     Indication: CARDIAC DISORDER
  2. PRADAXA [Suspect]
     Indication: ATRIAL FIBRILLATION
     Dosage: 300 MG
     Dates: start: 20110101
  3. ACLARAZINE [Concomitant]
     Indication: CARDIAC DISORDER
  4. AMLODIPINE [Concomitant]
     Indication: CARDIAC DISORDER

REACTIONS (1)
  - ARTHRALGIA [None]
